FAERS Safety Report 4601021-6 (Version None)
Quarter: 2005Q1

REPORT INFORMATION
  Report Type: 
  Country: None (occurrence: None)
  Receive Date: 20050304
  Receipt Date: 20050304
  Transmission Date: 20050727
  Serious: No
  Sender: FDA-Public Use
  Company Number: None

PATIENT
  Sex: Male
  Weight: 75.2971 kg

DRUGS (3)
  1. LOPERAMIDE [Suspect]
     Indication: DIARRHOEA
     Dosage: 2 MG PO PRN DIARRHEA
     Route: 048
     Dates: start: 20050302, end: 20050304
  2. ETOPOSIDE [Concomitant]
  3. CARBOPLATIN [Concomitant]

REACTIONS (3)
  - DIARRHOEA [None]
  - RASH ERYTHEMATOUS [None]
  - RASH PRURITIC [None]
